FAERS Safety Report 9515845 (Version 2)
Quarter: 2014Q1

REPORT INFORMATION
  Report Type: Spontaneous
  Country: US (occurrence: None)
  Receive Date: 20130305
  Receipt Date: 20140306
  Transmission Date: 20141002
  Serious: Yes (Disabling)
  Sender: FDA-Public Use
  Company Number: 163-21880-12112580

PATIENT
  Age: 62 Year
  Sex: Male

DRUGS (12)
  1. REVLIMID [Suspect]
     Indication: PLASMA CELL MYELOMA
     Dosage: 25  MG, 21 IN 28 D, PO
     Route: 048
     Dates: start: 20110511
  2. ACYCLOVIR (ACICLOVIR) (ACICLOVIR) [Concomitant]
  3. ADULT LOW DOSE ASPIRIN (ACETYLSALICYLIC ACID) [Concomitant]
  4. LEVOFLOXACIN (LEVOFLOXACIN) [Concomitant]
  5. NAPROXEN (NAPROXEN) [Concomitant]
  6. PREDNISONE (PREDNISONE) [Concomitant]
  7. VITAMIN D (ERGOCALCIFEROL) [Concomitant]
  8. MUCINEX (GUAIFENESIN) [Concomitant]
  9. FLOMAX (TAMSULOSIN HYDROCHLORIDE) [Concomitant]
  10. NEXIUM (ESOMEPRAZOLE) [Concomitant]
  11. PRAVASTATIN (PRAVASTATIN) [Concomitant]
  12. ZOMETA (ZOLEDRONIC ACID) [Concomitant]

REACTIONS (4)
  - Constipation [None]
  - Nausea [None]
  - Muscle spasms [None]
  - Plasma cell myeloma [None]
